FAERS Safety Report 23678439 (Version 1)
Quarter: 2024Q1

REPORT INFORMATION
  Report Type: Spontaneous
  Country: FR (occurrence: FR)
  Receive Date: 20240327
  Receipt Date: 20240327
  Transmission Date: 20240409
  Serious: Yes (Other)
  Sender: FDA-Public Use
  Company Number: FR-KRKA-FR2022K13199LIT

PATIENT
  Age: 29 Year
  Sex: Female

DRUGS (14)
  1. PREGABALIN [Suspect]
     Active Substance: PREGABALIN
     Indication: Trigeminal neuropathy
     Dosage: 150 MG, PER DAY
     Route: 065
  2. PREGABALIN [Suspect]
     Active Substance: PREGABALIN
     Indication: Neuralgia
  3. DULOXETINE [Suspect]
     Active Substance: DULOXETINE
     Indication: Trigeminal neuropathy
     Dosage: SUFFICIENT DOSES OVER SEVERAL MONTHS
     Route: 065
  4. DULOXETINE [Suspect]
     Active Substance: DULOXETINE
     Indication: Anxiolytic therapy
  5. VENLAFAXINE [Suspect]
     Active Substance: VENLAFAXINE HYDROCHLORIDE
     Indication: Trigeminal neuropathy
     Dosage: SUFFICIENT DOSES OVER SEVERAL MONTHS
     Route: 065
  6. CARBAMAZEPINE [Suspect]
     Active Substance: CARBAMAZEPINE
     Indication: Trigeminal neuropathy
     Dosage: SUFFICIENT DOSES OVER SEVERAL MONTHS
     Route: 065
  7. ROPIVACAINE [Suspect]
     Active Substance: ROPIVACAINE
     Indication: Nerve block
     Dosage: 7.5 MILLIGRAM PER MILLILITRE
     Route: 065
  8. ROPIVACAINE [Suspect]
     Active Substance: ROPIVACAINE
     Dosage: 7.5 MG/ML
     Route: 065
  9. CLONAZEPAM [Suspect]
     Active Substance: CLONAZEPAM
     Indication: Trigeminal neuropathy
     Dosage: 2.5 MG/ML (6 DROPS THREE TIMES DAILY)
     Route: 065
  10. CLONAZEPAM [Suspect]
     Active Substance: CLONAZEPAM
     Indication: Neuralgia
     Dosage: 2.5 MILLIGRAM PER MILLILITRE, 6 DROPS, 0.33 DAY
     Route: 065
  11. AMITRIPTYLINE [Suspect]
     Active Substance: AMITRIPTYLINE
     Indication: Trigeminal neuropathy
     Dosage: SUFFICIENT DOSES OVER SEVERAL MONTHS
     Route: 065
  12. AMITRIPTYLINE [Suspect]
     Active Substance: AMITRIPTYLINE
     Indication: Neuralgia
  13. BOTOX [Suspect]
     Active Substance: ONABOTULINUMTOXINA
     Indication: Trigeminal neuropathy
     Dosage: 25 IU,SMALL INJECTION VOLUME (0.5 ML) (INTRAGINGIVAL)
     Route: 065
  14. BOTOX [Suspect]
     Active Substance: ONABOTULINUMTOXINA
     Indication: Analgesic therapy
     Dosage: 50 IU IN 1 ML SALINE, A SECOND INJECTION WAS PERFORMED USING THE SAME DOSE (25 IU) AND VOLUME (0.5 M
     Route: 065

REACTIONS (7)
  - Amnesia [Unknown]
  - Disturbance in attention [Unknown]
  - Fatigue [Unknown]
  - Weight increased [Unknown]
  - Drug ineffective [Unknown]
  - Off label use [Unknown]
  - Impaired quality of life [Unknown]
